FAERS Safety Report 10743251 (Version 4)
Quarter: 2015Q2

REPORT INFORMATION
  Report Type: Spontaneous
  Country: US (occurrence: US)
  Receive Date: 20150127
  Receipt Date: 20150615
  Transmission Date: 20150821
  Serious: No
  Sender: FDA-Public Use
  Company Number: US-PFIZER INC-2015029638

PATIENT
  Age: 54 Year
  Sex: Female

DRUGS (4)
  1. CORTEF [Suspect]
     Active Substance: HYDROCORTISONE
     Indication: ADRENAL INSUFFICIENCY
     Dosage: 15 MG, DAILY (2 TABS QAM AND 1 TAB QPM)
     Route: 048
  2. CORTEF [Suspect]
     Active Substance: HYDROCORTISONE
     Indication: ADDISON^S DISEASE
     Dosage: 15 MG, DAILY (2 TABS QAM AND 1 TAB QPM)
     Route: 048
  3. TIROSINT [Concomitant]
     Active Substance: LEVOTHYROXINE SODIUM
     Indication: HYPOTHYROIDISM
     Dosage: UNK UNK, 1X/DAY
     Dates: start: 20130624
  4. FLUDROCORTISONE [Suspect]
     Active Substance: FLUDROCORTISONE
     Indication: ADRENAL DISORDER
     Dosage: HALF A TABLET, IN THE MORNING
     Route: 048

REACTIONS (8)
  - Wrong technique in drug usage process [Unknown]
  - Malaise [Unknown]
  - Drug ineffective [Unknown]
  - Fatigue [Unknown]
  - Musculoskeletal stiffness [Unknown]
  - Product quality issue [Unknown]
  - Pain [Unknown]
  - Arthralgia [Unknown]
